FAERS Safety Report 7064466-3 (Version None)
Quarter: 2010Q4

REPORT INFORMATION
  Report Type: 
  Country: None (occurrence: None)
  Receive Date: 20101027
  Receipt Date: 20101015
  Transmission Date: 20110411
  Serious: Yes (Hospitalization)
  Sender: FDA-Public Use
  Company Number: IT-PFIZER INC-2010127201

PATIENT
  Age: 66 Year
  Sex: Male

DRUGS (6)
  1. SUTENT [Suspect]
     Indication: RENAL CANCER
     Dosage: 37.5 MG, CYCLIC
     Route: 048
     Dates: start: 20090929, end: 20100511
  2. ZOMETA [Concomitant]
     Dosage: 3.5 MG, UNK
     Route: 048
     Dates: start: 20091014
  3. OXYCODONE HYDROCHLORIDE [Concomitant]
     Dosage: 20 MG, UNK
     Route: 048
     Dates: start: 20091111
  4. METFORMIN HYDROCHLORIDE [Concomitant]
     Dosage: 500 MG, UNK
     Route: 048
     Dates: start: 20091014
  5. CALCIUM SANDOZ C [Concomitant]
     Dosage: 1000 MG, UNK
     Route: 048
     Dates: start: 20091014
  6. XANAX [Concomitant]
     Dosage: 20 DROPS
     Route: 048
     Dates: start: 20091014

REACTIONS (2)
  - GASTRIC ULCER [None]
  - HYPOTHYROIDISM [None]
